FAERS Safety Report 8014530-7 (Version None)
Quarter: 2011Q4

REPORT INFORMATION
  Report Type: 
  Country: None (occurrence: None)
  Receive Date: 20111223
  Receipt Date: 20111209
  Transmission Date: 20120403
  Serious: No
  Sender: FDA-Public Use
  Company Number: TPA2011A07946

PATIENT
  Age: 86 Year
  Sex: Female

DRUGS (10)
  1. PREDNISOLONE MERCK (PREDNISOLONE) [Concomitant]
  2. POTASSIUM CHLORIDE [Concomitant]
  3. MACROGOL 4000 (MACROGOL) [Concomitant]
  4. ECONAZOLE (ECONAZOLE) [Concomitant]
  5. ADENURIC (FEBUXOSTAT) [Suspect]
     Indication: HYPERURICAEMIA
     Dosage: 80 MG (80 MG, 1 IN 1 D)
     Route: 048
     Dates: start: 20110826
  6. COLCHIMAX (COLCHICINE, DICYCLOVERINE HYDROCHLORIDE) [Concomitant]
  7. DIPROSONE (BETAMETHASONE SODIUM PHOSPHATE) [Concomitant]
  8. LEVOTHYROXINE SODIUM [Concomitant]
  9. BROMAZEPAM (BROMAZEPAM) [Concomitant]
  10. FUROSEMIDE [Concomitant]

REACTIONS (2)
  - ECZEMA [None]
  - TOXIC SKIN ERUPTION [None]
